FAERS Safety Report 23560240 (Version 1)
Quarter: 2024Q1

REPORT INFORMATION
  Report Type: Report from Study
  Country: CA (occurrence: CA)
  Receive Date: 20240223
  Receipt Date: 20240223
  Transmission Date: 20240410
  Serious: Yes (Hospitalization)
  Sender: FDA-Public Use
  Company Number: CA-JAZZ-2022-CA-002856

PATIENT
  Sex: Female

DRUGS (22)
  1. XYREM [Suspect]
     Active Substance: SODIUM OXYBATE
     Indication: Cataplexy
     Dosage: 1 GRAM, BID
     Route: 048
     Dates: start: 20201219, end: 20210104
  2. XYREM [Suspect]
     Active Substance: SODIUM OXYBATE
     Dosage: 2.25 GRAM, BID
     Route: 048
     Dates: start: 20210105, end: 20210210
  3. XYREM [Suspect]
     Active Substance: SODIUM OXYBATE
     Dosage: 2.5 GRAM, BID
     Route: 048
     Dates: start: 20210211, end: 20210318
  4. XYREM [Suspect]
     Active Substance: SODIUM OXYBATE
     Dosage: 2.75 GRAM, BID
     Route: 048
     Dates: start: 20210319, end: 202103
  5. XYREM [Suspect]
     Active Substance: SODIUM OXYBATE
     Dosage: 2.875 GRAM, BID
     Route: 048
     Dates: start: 202103, end: 202103
  6. XYREM [Suspect]
     Active Substance: SODIUM OXYBATE
     Dosage: 3 GRAM, BID
     Route: 048
     Dates: start: 20210503, end: 20210525
  7. XYREM [Suspect]
     Active Substance: SODIUM OXYBATE
     Dosage: 3.25 GRAM, BID
     Route: 048
     Dates: start: 20210526, end: 20210721
  8. XYREM [Suspect]
     Active Substance: SODIUM OXYBATE
     Dosage: 3.5 GRAM, BID
     Route: 048
     Dates: start: 20210722, end: 202107
  9. XYREM [Suspect]
     Active Substance: SODIUM OXYBATE
     Dosage: 3.75 GRAM, BID
     Route: 048
     Dates: start: 202107, end: 20210828
  10. XYREM [Suspect]
     Active Substance: SODIUM OXYBATE
     Dosage: 3.8 GRAM, BID
     Route: 048
     Dates: start: 20210829, end: 202109
  11. XYREM [Suspect]
     Active Substance: SODIUM OXYBATE
     Dosage: 3.9 GRAM, BID
     Route: 048
     Dates: start: 202109
  12. XYREM [Suspect]
     Active Substance: SODIUM OXYBATE
     Dosage: 4.4 GRAM, BID
     Route: 048
     Dates: end: 202204
  13. XYREM [Suspect]
     Active Substance: SODIUM OXYBATE
     Dosage: 4.5 GRAM, BID
     Route: 048
     Dates: start: 202204, end: 202205
  14. XYREM [Suspect]
     Active Substance: SODIUM OXYBATE
     Dosage: 4.4 GRAM, BID
     Route: 048
     Dates: start: 202205
  15. XYREM [Suspect]
     Active Substance: SODIUM OXYBATE
     Dosage: 4.5 GRAM, BID
     Route: 048
  16. MODAFINIL [Concomitant]
     Active Substance: MODAFINIL
     Indication: Product used for unknown indication
     Dosage: 50 MILLIGRAM AT 12:00
  17. MODAFINIL [Concomitant]
     Active Substance: MODAFINIL
     Dosage: 100 MILLIGRAM, AM
  18. TRAZODONE [Concomitant]
     Active Substance: TRAZODONE HYDROCHLORIDE
     Indication: Product used for unknown indication
     Dosage: 100 MILLIGRAM
  19. APO-METHYLPHENIDATE [Concomitant]
     Indication: Product used for unknown indication
     Dosage: 5 MILLIGRAM
  20. METHYLPHENIDATE [Concomitant]
     Active Substance: METHYLPHENIDATE
     Indication: Product used for unknown indication
     Dosage: UNK
  21. VYVANSE [Concomitant]
     Active Substance: LISDEXAMFETAMINE DIMESYLATE
     Indication: Product used for unknown indication
     Dosage: UNK
  22. ATOMOXETINE [Concomitant]
     Active Substance: ATOMOXETINE
     Indication: Product used for unknown indication
     Dosage: 1.8 MILLIGRAM

REACTIONS (2)
  - Hospitalisation [Unknown]
  - Product administration interrupted [Unknown]
